FAERS Safety Report 12233560 (Version 1)
Quarter: 2016Q2

REPORT INFORMATION
  Report Type: Spontaneous
  Country: DE (occurrence: DE)
  Receive Date: 20160404
  Receipt Date: 20160404
  Transmission Date: 20160815
  Serious: Yes (Congenital Anomaly)
  Sender: FDA-Public Use
  Company Number: DE-SUN PHARMACEUTICAL INDUSTRIES LTD-2016RR-114140

PATIENT
  Age: 1 Day
  Sex: Male

DRUGS (6)
  1. DOPEGYT [Concomitant]
     Active Substance: METHYLDOPA
     Indication: HYPERTENSION
     Route: 064
  2. COLOMIFENE [Concomitant]
     Indication: OVULATION INDUCTION
     Route: 064
  3. METOPROLOL. [Suspect]
     Active Substance: METOPROLOL
     Indication: HYPERTENSION
     Route: 064
  4. ADALAT [Concomitant]
     Active Substance: NIFEDIPINE
     Indication: HYPERTENSION
     Dosage: UNK
     Route: 064
  5. HUMIRA [Suspect]
     Active Substance: ADALIMUMAB
     Indication: CROHN^S DISEASE
     Dosage: SINCE JUN 2013 EVERY TWO WEEKS HUMIRA; ONLY ONCE SINCE PATIENT IS PREGNANT
     Route: 064
  6. L-THYROXIN [Concomitant]
     Active Substance: LEVOTHYROXINE SODIUM
     Indication: HYPOTHYROIDISM
     Dosage: 75 ?G, DAILY
     Route: 064
     Dates: start: 20150310, end: 20151207

REACTIONS (2)
  - Naevus flammeus [Not Recovered/Not Resolved]
  - Congenital musculoskeletal anomaly [Unknown]

NARRATIVE: CASE EVENT DATE: 20151207
